FAERS Safety Report 6456186-0 (Version None)
Quarter: 2009Q4

REPORT INFORMATION
  Report Type: 
  Country: None (occurrence: None)
  Receive Date: 20091125
  Receipt Date: 20091117
  Transmission Date: 20100525
  Serious: Yes (Hospitalization)
  Sender: FDA-Public Use
  Company Number: FR-PFIZER INC-2009293486

PATIENT
  Age: 71 Year
  Sex: Female

DRUGS (4)
  1. AMLOR [Suspect]
     Indication: HYPERTENSION
     Dosage: 5 MG, UNK
     Route: 048
  2. ABILIFY [Suspect]
     Dosage: 40 MG, DAILY
     Route: 048
     Dates: start: 20090701
  3. TEGRETOL [Suspect]
     Dosage: 400 MG, 1X/DAY
     Route: 048
  4. KEPPRA [Suspect]
     Dosage: 500 MG, 1X/DAY
     Route: 048

REACTIONS (6)
  - BLOOD CREATINE PHOSPHOKINASE INCREASED [None]
  - HAEMATOMA [None]
  - HYPOTENSION [None]
  - MUSCULOSKELETAL STIFFNESS [None]
  - MYALGIA [None]
  - MYOGLOBIN BLOOD INCREASED [None]
